FAERS Safety Report 8288942-0 (Version None)
Quarter: 2012Q2

REPORT INFORMATION
  Report Type: 
  Country: None (occurrence: None)
  Receive Date: 20120402
  Receipt Date: 20120326
  Transmission Date: 20120825
  Serious: Yes (Hospitalization, Other)
  Sender: FDA-Public Use
  Company Number: KAD201203-000208

PATIENT
  Age: 54 Year
  Sex: Male

DRUGS (1)
  1. RIBAVIRIN [Suspect]

REACTIONS (4)
  - LOSS OF CONSCIOUSNESS [None]
  - RASH GENERALISED [None]
  - ANXIETY [None]
  - ANAEMIA [None]
